FAERS Safety Report 9238535 (Version 1)
Quarter: 2013Q2

REPORT INFORMATION
  Report Type: Spontaneous
  Country: US (occurrence: US)
  Receive Date: 20130418
  Receipt Date: 20130418
  Transmission Date: 20140414
  Serious: Yes (Other)
  Sender: FDA-Public Use
  Company Number: PHHY2013US036183

PATIENT
  Age: 35 Year
  Sex: Female

DRUGS (4)
  1. HYDROMORPHONE [Suspect]
     Dosage: 33 MG, UNK
  2. DIPHENHYDRAMINE [Suspect]
  3. DEXMEDETOMIDINE [Concomitant]
  4. KETOROLAC [Concomitant]

REACTIONS (10)
  - Abdominal compartment syndrome [Recovered/Resolved]
  - Tachypnoea [Recovered/Resolved]
  - Dyspnoea [Recovered/Resolved]
  - Abdominal distension [Recovered/Resolved]
  - Lung disorder [Recovered/Resolved]
  - Functional gastrointestinal disorder [Recovered/Resolved]
  - Acquired diaphragmatic eventration [Recovered/Resolved]
  - Ileus [Recovered/Resolved]
  - Gastrointestinal motility disorder [Recovered/Resolved]
  - Drug ineffective [Unknown]
